FAERS Safety Report 24272785 (Version 3)
Quarter: 2024Q4

REPORT INFORMATION
  Report Type: Spontaneous
  Country: US (occurrence: US)
  Receive Date: 20240902
  Receipt Date: 20241007
  Transmission Date: 20250115
  Serious: Yes (Other)
  Sender: TEVA
  Company Number: US-TEVA-VS-3236758

PATIENT
  Age: 80 Year
  Sex: Female
  Weight: 83.91 kg

DRUGS (3)
  1. LORAZEPAM [Suspect]
     Active Substance: LORAZEPAM
     Indication: Atrial fibrillation
     Route: 065
     Dates: start: 2002
  2. WARFARIN [Concomitant]
     Active Substance: WARFARIN
     Indication: Product used for unknown indication
     Route: 065
  3. HYDROCODONE [Concomitant]
     Active Substance: HYDROCODONE
     Indication: Product used for unknown indication
     Route: 065

REACTIONS (7)
  - Fractured coccyx [Not Recovered/Not Resolved]
  - Product availability issue [Unknown]
  - Stress [Unknown]
  - Product use in unapproved indication [Unknown]
  - Fall [Unknown]
  - Product prescribing issue [Unknown]
  - Atrial fibrillation [Unknown]

NARRATIVE: CASE EVENT DATE: 20020101
